FAERS Safety Report 5594649-0 (Version None)
Quarter: 2008Q1

REPORT INFORMATION
  Report Type: 
  Country: None (occurrence: None)
  Receive Date: 20080115
  Receipt Date: 20080102
  Transmission Date: 20080703
  Serious: Yes (Disabling)
  Sender: FDA-Public Use
  Company Number: GB-1164868

PATIENT
  Age: 26 Year
  Sex: Male

DRUGS (1)
  1. ECONOCHLOR [Suspect]
     Dosage: QID OPHTHALMIC
     Route: 047
     Dates: start: 20071129, end: 20071129

REACTIONS (1)
  - ANGIOEDEMA [None]
